FAERS Safety Report 16902348 (Version 2)
Quarter: 2020Q4

REPORT INFORMATION
  Report Type: Spontaneous
  Country: FR (occurrence: FR)
  Receive Date: 20191010
  Receipt Date: 20201002
  Transmission Date: 20210113
  Serious: Yes (Other)
  Sender: FDA-Public Use
  Company Number: FR-GLAXOSMITHKLINE-FR2019179239

PATIENT
  Age: 22 Year
  Sex: Female

DRUGS (1)
  1. LAMICTAL [Suspect]
     Active Substance: LAMOTRIGINE
     Indication: EPILEPSY
     Dosage: 100 MG, QD
     Route: 048
     Dates: start: 201905

REACTIONS (2)
  - Abortion spontaneous [Recovered/Resolved with Sequelae]
  - Exposure during pregnancy [Unknown]

NARRATIVE: CASE EVENT DATE: 20190801
